FAERS Safety Report 14597100 (Version 1)
Quarter: 2018Q1

REPORT INFORMATION
  Report Type: Report from Study
  Country: US (occurrence: US)
  Receive Date: 20180305
  Receipt Date: 20180305
  Transmission Date: 20180509
  Serious: No
  Sender: FDA-Public Use
  Company Number: US-CELGENEUS-USA-20180208666

PATIENT

DRUGS (5)
  1. OTEZLA [Suspect]
     Active Substance: APREMILAST
     Indication: ECZEMA
  2. NEORAL [Concomitant]
     Active Substance: CYCLOSPORINE
     Indication: PSORIASIS
     Route: 065
  3. METHOTREXATE. [Concomitant]
     Active Substance: METHOTREXATE
     Indication: PRODUCT USED FOR UNKNOWN INDICATION
     Route: 065
  4. NEORAL [Concomitant]
     Active Substance: CYCLOSPORINE
     Indication: ECZEMA
  5. OTEZLA [Suspect]
     Active Substance: APREMILAST
     Indication: PSORIASIS
     Route: 048
     Dates: start: 20170515

REACTIONS (14)
  - Eczema [Unknown]
  - Drug effect incomplete [Unknown]
  - Diarrhoea [Recovering/Resolving]
  - Headache [Unknown]
  - Abdominal discomfort [Unknown]
  - Disturbance in attention [Unknown]
  - Discomfort [Recovered/Resolved]
  - Nausea [Recovered/Resolved]
  - Insomnia [Not Recovered/Not Resolved]
  - Psoriasis [Unknown]
  - Abdominal distension [Unknown]
  - Wheezing [Unknown]
  - Feeling abnormal [Unknown]
  - Dermatitis [Unknown]
